FAERS Safety Report 5338349-0 (Version None)
Quarter: 2007Q2

REPORT INFORMATION
  Report Type: 
  Country: None (occurrence: None)
  Receive Date: 20070530
  Receipt Date: 20070521
  Transmission Date: 20071010
  Serious: Yes (Other)
  Sender: FDA-Public Use
  Company Number: JP-ROCHE-490205

PATIENT
  Age: 14 Year
  Sex: Female

DRUGS (5)
  1. TAMIFLU [Suspect]
     Route: 048
     Dates: start: 20070320, end: 20070320
  2. CALONAL [Concomitant]
     Dosage: TAKEN AS NEEDED, 2T. GENERIC REPORTED AS ACETAMINOPHEN.
     Route: 048
     Dates: start: 20070320
  3. NEUZYM [Concomitant]
     Dosage: GENERIC REPORTED AS LYSOZYME HYDROCHLORIDE.
     Route: 048
     Dates: start: 20070320
  4. MUCODYNE [Concomitant]
     Route: 048
     Dates: start: 20070320
  5. TRANSAMIN [Concomitant]
     Route: 048
     Dates: start: 20070320

REACTIONS (1)
  - ABNORMAL BEHAVIOUR [None]
